FAERS Safety Report 23090793 (Version 1)
Quarter: 2023Q4

REPORT INFORMATION
  Report Type: Spontaneous
  Country: US (occurrence: None)
  Receive Date: 20231018
  Receipt Date: 20231018
  Transmission Date: 20240110
  Serious: Yes (Hospitalization)
  Sender: FDA-Public Use
  Company Number: None

PATIENT
  Age: 67 Year
  Sex: Female

DRUGS (1)
  1. RILUZOLE [Suspect]
     Active Substance: RILUZOLE
     Dosage: FREQUENCY : TWICE A DAY;?

REACTIONS (3)
  - Therapy interrupted [None]
  - Product availability issue [None]
  - Pulmonary embolism [None]
